FAERS Safety Report 12714180 (Version 1)
Quarter: 2016Q3

REPORT INFORMATION
  Report Type: Spontaneous
  Country: US (occurrence: US)
  Receive Date: 20160905
  Receipt Date: 20160905
  Transmission Date: 20161109
  Serious: No
  Sender: FDA-Public Use
  Company Number: US-PFIZER INC-2016413903

PATIENT
  Age: 71 Year
  Sex: Female

DRUGS (1)
  1. LYRICA [Suspect]
     Active Substance: PREGABALIN
     Indication: FIBROMYALGIA
     Dosage: 125 MG, DAILY,  (75 MG IN THE MORNING AND 50 MG AT NIGHT)
     Dates: start: 201509

REACTIONS (2)
  - Condition aggravated [Unknown]
  - Alopecia [Unknown]
